FAERS Safety Report 22124321 (Version 1)
Quarter: 2023Q1

REPORT INFORMATION
  Report Type: Spontaneous
  Country: US (occurrence: US)
  Receive Date: 20230322
  Receipt Date: 20230322
  Transmission Date: 20230418
  Serious: No
  Sender: FDA-Public Use
  Company Number: US-009507513-2303USA004437

PATIENT
  Age: 16 Year
  Sex: Male

DRUGS (4)
  1. PREVYMIS [Suspect]
     Active Substance: LETERMOVIR
     Indication: Antiviral prophylaxis
     Dosage: UNK
  2. ACYCLOVIR [Concomitant]
     Active Substance: ACYCLOVIR
     Indication: Antiviral prophylaxis
     Dosage: UNK
  3. RITUXIMAB [Concomitant]
     Active Substance: RITUXIMAB
     Indication: Demyelination
     Dosage: UNK
  4. RITUXIMAB [Concomitant]
     Active Substance: RITUXIMAB
     Indication: Axonal neuropathy

REACTIONS (1)
  - Off label use [Unknown]
